FAERS Safety Report 4401015-X (Version None)
Quarter: 2004Q3

REPORT INFORMATION
  Report Type: 
  Country: None (occurrence: None)
  Receive Date: 20040907
  Receipt Date: 20030919
  Transmission Date: 20050211
  Serious: No
  Sender: FDA-Public Use
  Company Number: US-BRISTOL-MYERS SQUIBB COMPANY-12389680

PATIENT
  Age: 86 Year
  Sex: Male
  Weight: 68 kg

DRUGS (11)
  1. COUMADIN [Suspect]
  2. PLAVIX [Suspect]
     Indication: CARDIAC DISORDER
     Route: 048
  3. PLAVIX [Suspect]
     Indication: CORONARY ARTERY SURGERY
     Route: 048
  4. PLAVIX [Suspect]
     Indication: CORONARY ARTERIAL STENT INSERTION
     Route: 048
  5. ASPIRIN [Concomitant]
  6. DIOVAN [Concomitant]
  7. FUROSEMIDE [Concomitant]
  8. COREG [Concomitant]
  9. LIPITOR [Concomitant]
  10. GLUCOSAMINE [Concomitant]
  11. VIOXX [Concomitant]

REACTIONS (5)
  - BLISTER [None]
  - ERYTHEMA [None]
  - INTERNATIONAL NORMALISED RATIO INCREASED [None]
  - PRURITUS [None]
  - VOMITING [None]
